FAERS Safety Report 11939475 (Version 1)
Quarter: 2016Q1

REPORT INFORMATION
  Report Type: Spontaneous
  Country: US (occurrence: US)
  Receive Date: 20160122
  Receipt Date: 20160122
  Transmission Date: 20160526
  Serious: No
  Sender: FDA-Public Use
  Company Number: US-BAUSCH-BL-2015-024701

PATIENT
  Age: 57 Year
  Sex: Female

DRUGS (3)
  1. LOTEMAX [Suspect]
     Active Substance: LOTEPREDNOL ETABONATE
     Indication: CONJUNCTIVITIS
     Route: 047
     Dates: start: 201510, end: 20151018
  2. LOTEMAX [Suspect]
     Active Substance: LOTEPREDNOL ETABONATE
     Indication: CONJUNCTIVITIS
     Route: 047
  3. LOTEMAX [Suspect]
     Active Substance: LOTEPREDNOL ETABONATE
     Route: 047

REACTIONS (2)
  - Eye irritation [Recovering/Resolving]
  - Eye inflammation [Recovering/Resolving]
